FAERS Safety Report 9514027 (Version 5)
Quarter: 2014Q4

REPORT INFORMATION
  Report Type: Spontaneous
  Country: AU (occurrence: AU)
  Receive Date: 20130910
  Receipt Date: 20141219
  Transmission Date: 20150529
  Serious: Yes (Hospitalization, Other)
  Sender: FDA-Public Use
  Company Number: AU-PFIZER INC-2013203958

PATIENT
  Age: 56 Year
  Sex: Female
  Weight: 96 kg

DRUGS (15)
  1. METHOTREXATE (METHOTREXATE SODIUM) [Concomitant]
     Active Substance: METHOTREXATE SODIUM
     Dosage: 10 MG 2 ONCE A WEEK ON WEDNESDAYS
  2. EFFEXOR [Concomitant]
     Active Substance: VENLAFAXINE HYDROCHLORIDE
     Dosage: 225, IN THE MORNING
  3. LYRICA [Suspect]
     Active Substance: PREGABALIN
     Indication: NEURALGIA
     Dosage: 75 MG, 2X/DAY
     Route: 048
     Dates: start: 201303, end: 201306
  4. RAMIPRIL. [Concomitant]
     Active Substance: RAMIPRIL
     Dosage: 10 MG, 1 IN THE MORNING
  5. PANADOL [Concomitant]
     Active Substance: ACETAMINOPHEN
     Dosage: 665 MG 2 TWICE A DAY
  6. SPIRACTIN [Concomitant]
     Active Substance: SPIRONOLACTONE
     Dosage: 25 MG, 1 IN THE MORNING
  7. TRAMEDO [Concomitant]
     Dosage: 50 MG, 3X/DAY WHEN REQUIRED
  8. FRUSEMIDE [Concomitant]
     Active Substance: FUROSEMIDE
     Dosage: 40 MG, 2 IN THE MORNING, 1 AT LUNCH
  9. MEGAFOL [Concomitant]
     Active Substance: FOLIC ACID
     Dosage: 5 MG, 1 ON MONDAYS AND TUESDAYS
  10. JURNISTA [Concomitant]
     Active Substance: HYDROMORPHONE HYDROCHLORIDE
     Dosage: 64, 1X/DAY
  11. CORALAN [Concomitant]
     Dosage: 5 MG 2X/DAY
  12. NEXIUM [Concomitant]
     Active Substance: ESOMEPRAZOLE MAGNESIUM
     Dosage: 20 MG 1X/DAY IN THE MORNING ON AN EMPTY STOMACH
  13. NITROLINGUAL PUMPSPRAY [Concomitant]
     Active Substance: NITROGLYCERIN
     Dosage: 400 UG/DOSE, 1-2 SPRAY
  14. PREMIA 5 CONTINOUS [Concomitant]
     Dosage: 5, 1 IN THE EVENING
  15. IMDUR [Concomitant]
     Active Substance: ISOSORBIDE MONONITRATE
     Dosage: 60 MG HALF DAILY

REACTIONS (4)
  - Suicidal ideation [Recovering/Resolving]
  - Irritability [Recovering/Resolving]
  - Insomnia [Recovering/Resolving]
  - Verbal abuse [Recovering/Resolving]

NARRATIVE: CASE EVENT DATE: 201305
